FAERS Safety Report 7464602-0 (Version None)
Quarter: 2011Q2

REPORT INFORMATION
  Report Type: 
  Country: None (occurrence: None)
  Receive Date: 20110509
  Receipt Date: 20110428
  Transmission Date: 20111010
  Serious: Yes (Hospitalization)
  Sender: FDA-Public Use
  Company Number: US-NOVOPROD-325068

PATIENT
  Age: 10 Year
  Sex: Female
  Weight: 28.5 kg

DRUGS (1)
  1. NORDITROPIN NORDIFLEX [Suspect]
     Dosage: 1.8 MG, QD
     Route: 058
     Dates: start: 20091024

REACTIONS (2)
  - CHOLELITHIASIS [None]
  - URINARY TRACT INFECTION [None]
